FAERS Safety Report 9361334 (Version 3)
Quarter: 2013Q3

REPORT INFORMATION
  Report Type: Spontaneous
  Country: CA (occurrence: CA)
  Receive Date: 20130621
  Receipt Date: 20130805
  Transmission Date: 20140515
  Serious: Yes (Hospitalization)
  Sender: FDA-Public Use
  Company Number: CA-GENZYME-FABR-1003339

PATIENT
  Age: 32 Year
  Sex: Male
  Weight: 64 kg

DRUGS (18)
  1. FABRAZYME [Suspect]
     Indication: FABRY^S DISEASE
     Dosage: 65 MG (1 MG/KG), Q2W
     Route: 042
     Dates: start: 20130102
  2. RED BLOOD CELLS [Concomitant]
     Indication: HAEMOGLOBIN DECREASED
     Dosage: UNK (2 UNITS RBC)
     Route: 065
     Dates: start: 20120604, end: 20120604
  3. PREDNISONE [Concomitant]
     Indication: PRODUCT USED FOR UNKNOWN INDICATION
     Dosage: UNK (TAPERING DOSE)
     Route: 065
     Dates: start: 201306
  4. ACETYLSALICYLIC ACID [Concomitant]
     Indication: PLATELET AGGREGATION
     Dosage: 81 MG, QD
     Route: 048
     Dates: start: 2012
  5. LOSARTAN [Concomitant]
     Indication: PRODUCT USED FOR UNKNOWN INDICATION
     Dosage: 100 MG, QD
     Route: 065
     Dates: start: 201305
  6. AMLODIPINE [Concomitant]
     Indication: PRODUCT USED FOR UNKNOWN INDICATION
     Dosage: 10 MG, QD
     Route: 065
     Dates: start: 2012
  7. PREGABALIN [Concomitant]
     Indication: PRODUCT USED FOR UNKNOWN INDICATION
     Dosage: 50 MG, BID
     Route: 065
  8. CALCIUM ACETATE [Concomitant]
     Indication: PRODUCT USED FOR UNKNOWN INDICATION
     Dosage: 667 MG, TID
     Route: 065
     Dates: start: 201303
  9. CLONAZEPAM [Concomitant]
     Indication: PRODUCT USED FOR UNKNOWN INDICATION
     Dosage: UNK
     Route: 065
     Dates: start: 201306
  10. FOLIC ACID [Concomitant]
     Indication: PRODUCT USED FOR UNKNOWN INDICATION
     Dosage: 5 MG, QD
     Route: 065
     Dates: start: 201306
  11. COLACE [Concomitant]
     Indication: PRODUCT USED FOR UNKNOWN INDICATION
     Dosage: 200 MG, QD
     Route: 065
     Dates: start: 201306
  12. DILANTIN [Concomitant]
     Indication: CONVULSION
     Dosage: 300 MG, QHS
     Route: 065
     Dates: start: 201306
  13. RENA-VITE [Concomitant]
     Indication: PRODUCT USED FOR UNKNOWN INDICATION
     Dosage: UNK
     Route: 065
     Dates: start: 201303
  14. ALFACALCIDOL [Concomitant]
     Indication: PRODUCT USED FOR UNKNOWN INDICATION
     Dosage: 0.25 MCG, 3X/W
     Route: 065
     Dates: start: 201303
  15. PANTOPRAZOLE [Concomitant]
     Indication: PRODUCT USED FOR UNKNOWN INDICATION
     Dosage: 40 MG, QD
     Route: 065
     Dates: start: 201306
  16. FERROUS GLUCONATE [Concomitant]
     Indication: PRODUCT USED FOR UNKNOWN INDICATION
     Dosage: 125 MG, Q2W
     Route: 042
     Dates: start: 201306
  17. DARBEPOETIN ALFA [Concomitant]
     Indication: ANAEMIA
     Dosage: 40 MCG, QW
     Route: 042
     Dates: start: 201306
  18. GABAPENTIN [Concomitant]
     Indication: PARAESTHESIA
     Dosage: 100 MG, QD
     Route: 065
     Dates: start: 2013

REACTIONS (3)
  - Grand mal convulsion [Recovered/Resolved]
  - Depressed level of consciousness [Recovered/Resolved]
  - Hyperkalaemia [Recovered/Resolved]
